FAERS Safety Report 7743911-1 (Version None)
Quarter: 2011Q3

REPORT INFORMATION
  Report Type: 
  Country: None (occurrence: None)
  Receive Date: 20110912
  Receipt Date: 20110907
  Transmission Date: 20111222
  Serious: Yes (Other)
  Sender: FDA-Public Use
  Company Number: GR-GLAXOSMITHKLINE-B0667243A

PATIENT
  Age: 61 Year
  Sex: Female
  Weight: 72 kg

DRUGS (1)
  1. LAPATINIB [Suspect]
     Indication: BREAST CANCER METASTATIC
     Dosage: 1250MG PER DAY
     Route: 048
     Dates: start: 20100309, end: 20100413

REACTIONS (7)
  - NECROSIS [None]
  - HEPATITIS [None]
  - JAUNDICE [None]
  - HEPATIC FIBROSIS [None]
  - HEPATOTOXICITY [None]
  - HAEMORRHAGE [None]
  - HEPATIC ENZYME INCREASED [None]
